FAERS Safety Report 23380323 (Version 2)
Quarter: 2024Q1

REPORT INFORMATION
  Report Type: Report from Study
  Country: US (occurrence: US)
  Receive Date: 20240109
  Receipt Date: 20240129
  Transmission Date: 20240410
  Serious: Yes (Hospitalization, Other)
  Sender: FDA-Public Use
  Company Number: US-TAKEDA-2023TUS037161

PATIENT
  Age: 66 Year
  Sex: Male

DRUGS (12)
  1. TEDUGLUTIDE [Suspect]
     Active Substance: TEDUGLUTIDE
     Indication: Short-bowel syndrome
     Dosage: 3.43 MILLIGRAM, QD
     Route: 058
     Dates: start: 202210
  2. TEDUGLUTIDE [Suspect]
     Active Substance: TEDUGLUTIDE
     Indication: Short-bowel syndrome
     Dosage: 3.43 MILLIGRAM, QD
     Route: 058
     Dates: start: 202210
  3. TEDUGLUTIDE [Suspect]
     Active Substance: TEDUGLUTIDE
     Indication: Short-bowel syndrome
     Dosage: 3.43 MILLIGRAM, QD
     Route: 058
     Dates: start: 202210
  4. TEDUGLUTIDE [Suspect]
     Active Substance: TEDUGLUTIDE
     Indication: Short-bowel syndrome
     Dosage: 3.43 MILLIGRAM, QD
     Route: 058
     Dates: start: 202210
  5. TEDUGLUTIDE [Suspect]
     Active Substance: TEDUGLUTIDE
     Dosage: 3.43 MILLIGRAM, QD
     Route: 058
     Dates: start: 20221114
  6. TEDUGLUTIDE [Suspect]
     Active Substance: TEDUGLUTIDE
     Dosage: 3.43 MILLIGRAM, QD
     Route: 058
     Dates: start: 20221114
  7. TEDUGLUTIDE [Suspect]
     Active Substance: TEDUGLUTIDE
     Dosage: 3.43 MILLIGRAM, QD
     Route: 058
     Dates: start: 20221114
  8. TEDUGLUTIDE [Suspect]
     Active Substance: TEDUGLUTIDE
     Dosage: 3.43 MILLIGRAM, QD
     Route: 058
     Dates: start: 20221114
  9. TEDUGLUTIDE [Suspect]
     Active Substance: TEDUGLUTIDE
     Dosage: 0.34 MILLILITER, QD
     Route: 058
  10. TEDUGLUTIDE [Suspect]
     Active Substance: TEDUGLUTIDE
     Dosage: 0.34 MILLILITER, QD
     Route: 058
  11. TEDUGLUTIDE [Suspect]
     Active Substance: TEDUGLUTIDE
     Dosage: 0.34 MILLILITER, QD
     Route: 058
  12. TEDUGLUTIDE [Suspect]
     Active Substance: TEDUGLUTIDE
     Dosage: 0.34 MILLILITER, QD
     Route: 058

REACTIONS (6)
  - Nephrolithiasis [Recovered/Resolved]
  - Mycobacterium avium complex infection [Recovered/Resolved]
  - Chronic obstructive pulmonary disease [Unknown]
  - Decreased appetite [Unknown]
  - Bronchitis [Recovered/Resolved]
  - Weight decreased [Unknown]

NARRATIVE: CASE EVENT DATE: 20230601
